FAERS Safety Report 7076955-6 (Version None)
Quarter: 2010Q4

REPORT INFORMATION
  Report Type: 
  Country: None (occurrence: None)
  Receive Date: 20101101
  Receipt Date: 20101022
  Transmission Date: 20110411
  Serious: Yes (Hospitalization, Other)
  Sender: FDA-Public Use
  Company Number: US-ASTRAZENECA-2009SE32231

PATIENT
  Sex: Male
  Weight: 45.4 kg

DRUGS (3)
  1. SEROQUEL [Suspect]
     Route: 048
  2. SEROQUEL [Suspect]
     Route: 048
  3. THIRTEEN OTHER PILLS [Concomitant]

REACTIONS (6)
  - DIZZINESS [None]
  - FALL [None]
  - GAIT DISTURBANCE [None]
  - LOSS OF CONSCIOUSNESS [None]
  - PARKINSON'S DISEASE [None]
  - WEIGHT DECREASED [None]
